FAERS Safety Report 8326827-1 (Version None)
Quarter: 2012Q2

REPORT INFORMATION
  Report Type: 
  Country: None (occurrence: None)
  Receive Date: 20120430
  Receipt Date: 20120426
  Transmission Date: 20120825
  Serious: Yes (Hospitalization, Other)
  Sender: FDA-Public Use
  Company Number: ADR-2011-11511

PATIENT
  Age: 34 Year
  Sex: Female

DRUGS (3)
  1. MORPHINE 50 MG/ML [Concomitant]
  2. BACLOFEN [Suspect]
     Indication: CEREBRAL PALSY
     Dosage: 50.11 MCG/DAY
     Route: 037
  3. BUPIVACAINE 15 MG/ML [Concomitant]

REACTIONS (13)
  - VOMITING [None]
  - SPASTIC PARAPLEGIA [None]
  - MUSCLE SPASMS [None]
  - CONDITION AGGRAVATED [None]
  - URINARY TRACT INFECTION [None]
  - DEVICE OCCLUSION [None]
  - IMPLANT SITE REACTION [None]
  - ESCHERICHIA TEST POSITIVE [None]
  - JOINT CONTRACTURE [None]
  - INCORRECT DOSE ADMINISTERED [None]
  - GRANULOMA [None]
  - PAIN [None]
  - NAUSEA [None]
